FAERS Safety Report 6928882-X (Version None)
Quarter: 2010Q3

REPORT INFORMATION
  Report Type: 
  Country: None (occurrence: None)
  Receive Date: 20100817
  Receipt Date: 20100812
  Transmission Date: 20110219
  Serious: Yes (Hospitalization)
  Sender: FDA-Public Use
  Company Number: US-BRISTOL-MYERS SQUIBB COMPANY-15195399

PATIENT
  Age: 57 Year
  Sex: Female
  Weight: 67 kg

DRUGS (12)
  1. CARBOPLATIN [Suspect]
     Indication: NON-SMALL CELL LUNG CANCER STAGE IV
     Dosage: RECENT DOSE:03JUN10 DISCONTINUED ON 24JUN10 6DF:6AUC
     Route: 042
     Dates: start: 20100513, end: 20100603
  2. ALIMTA [Suspect]
     Indication: NON-SMALL CELL LUNG CANCER STAGE IV
     Dosage: RECENT DOSE:03JUN10 DISCONTINUED ON 24JUN10
     Route: 042
     Dates: start: 20100513, end: 20100603
  3. BEVACIZUMAB [Suspect]
     Indication: NON-SMALL CELL LUNG CANCER STAGE IV
     Dosage: RECENT DOSE:03JUN10 DISCONTINUED ON 24JUN10
     Route: 042
     Dates: start: 20100513, end: 20100603
  4. PROCARDIA [Concomitant]
     Indication: HYPERTENSION
     Dosage: THERAPY ONGOING.
  5. PROTONIX [Concomitant]
     Indication: GASTROOESOPHAGEAL REFLUX DISEASE
     Dosage: THERAPY ONGOING.
  6. DEXAMETHASONE [Concomitant]
     Indication: LUNG NEOPLASM MALIGNANT
     Dosage: THERAPY ONGOING.
  7. OXYCONTIN [Concomitant]
     Indication: PAIN
     Dosage: THERAPY ONGOING.
  8. LIPITOR [Concomitant]
     Indication: HYPERLIPIDAEMIA
     Dosage: THERAPY ONGOING.
  9. OXYCODONE [Concomitant]
     Indication: PAIN
     Dosage: THERAPY ONGOING.
  10. COUMADIN [Concomitant]
     Indication: DEEP VEIN THROMBOSIS
     Dosage: POSSIBLY FROM 01JUL2010. THERAPY ONGOING.
     Dates: start: 20100701
  11. FOLIC ACID [Concomitant]
  12. VITAMIN B-12 [Concomitant]

REACTIONS (3)
  - DEEP VEIN THROMBOSIS [None]
  - DYSPNOEA [None]
  - RENAL FAILURE ACUTE [None]
